FAERS Safety Report 8988298 (Version 1)
Quarter: 2012Q4

REPORT INFORMATION
  Report Type: 
  Country: JP (occurrence: JP)
  Receive Date: 20121227
  Receipt Date: 20121227
  Transmission Date: 20130627
  Serious: Yes (Death, Other)
  Sender: FDA-Public Use
  Company Number: JP-ROCHE-1168190

PATIENT
  Age: 59 Year
  Sex: Male

DRUGS (3)
  1. AVASTIN [Suspect]
     Indication: LUNG CANCER METASTATIC
     Dosage: Dosage is uncertain.
     Route: 041
     Dates: start: 201205
  2. PACLITAXEL [Suspect]
     Indication: LUNG CANCER METASTATIC
     Dosage: Dosage is uncertain.
     Route: 041
     Dates: start: 201205
  3. CARBOPLATIN [Concomitant]
     Indication: LUNG CANCER METASTATIC
     Dosage: Dosage is uncertain.
     Route: 041

REACTIONS (5)
  - Gallbladder perforation [Unknown]
  - Ulcer [Unknown]
  - Diarrhoea [Unknown]
  - Disease progression [Fatal]
  - Cholelithiasis [Unknown]
